FAERS Safety Report 20810684 (Version 7)
Quarter: 2022Q3

REPORT INFORMATION
  Report Type: Report from Study
  Country: US (occurrence: US)
  Receive Date: 20220510
  Receipt Date: 20220928
  Transmission Date: 20221027
  Serious: No
  Sender: FDA-Public Use
  Company Number: US-NOVARTISTESTPH-NVSC2022US107607

PATIENT
  Sex: Female

DRUGS (1)
  1. ADAKVEO [Suspect]
     Active Substance: CRIZANLIZUMAB-TMCA
     Indication: Sickle cell disease
     Dosage: UNK
     Route: 065

REACTIONS (16)
  - Crying [Unknown]
  - Stress [Unknown]
  - Chest pain [Unknown]
  - Pain [Unknown]
  - Mass [Unknown]
  - Hypersensitivity [Unknown]
  - Vein disorder [Unknown]
  - Urticaria [Unknown]
  - Injury associated with device [Unknown]
  - Feeling cold [Unknown]
  - Pain in extremity [Unknown]
  - Depression [Unknown]
  - Fatigue [Unknown]
  - Insomnia [Unknown]
  - Infusion site pain [Unknown]
  - Drug ineffective [Unknown]
